FAERS Safety Report 24894459 (Version 1)
Quarter: 2025Q1

REPORT INFORMATION
  Report Type: Spontaneous
  Country: US (occurrence: None)
  Receive Date: 20250128
  Receipt Date: 20250128
  Transmission Date: 20250409
  Serious: Yes (Hospitalization)
  Sender: FDA-CTU
  Company Number: None

PATIENT
  Sex: Male

DRUGS (9)
  1. NEORAL [Suspect]
     Active Substance: CYCLOSPORINE
     Indication: Heart transplant
     Route: 048
     Dates: start: 20171227
  2. CELLCEPT [Concomitant]
     Active Substance: MYCOPHENOLATE MOFETIL
  3. LASIX TAB 20MG [Concomitant]
  4. NEORAL SOL 1OOMG/ML [Concomitant]
  5. NORVASC TAB5MG [Concomitant]
  6. PRAVACHOL TAB 10MG [Concomitant]
  7. PREVACID [Concomitant]
     Active Substance: LANSOPRAZOLE
  8. REVATIO [Concomitant]
     Active Substance: SILDENAFIL CITRATE
  9. TEMAZEPAM CAP 15MG [Concomitant]

REACTIONS (1)
  - Nonspecific reaction [None]
